FAERS Safety Report 7087880-9 (Version None)
Quarter: 2010Q4

REPORT INFORMATION
  Report Type: 
  Country: None (occurrence: None)
  Receive Date: 20101108
  Receipt Date: 20101028
  Transmission Date: 20110411
  Serious: Yes (Hospitalization)
  Sender: FDA-Public Use
  Company Number: US-US-EMD SERONO, INC.-7018943

PATIENT
  Sex: Female

DRUGS (9)
  1. REBIF [Suspect]
     Indication: MULTIPLE SCLEROSIS
     Route: 058
     Dates: start: 20091114
  2. ANTIVERT [Concomitant]
     Indication: MENIERE'S DISEASE
     Dates: start: 20090801
  3. SYNTHROID [Concomitant]
     Indication: HYPOTHYROIDISM
  4. PREMARIN [Concomitant]
     Indication: HORMONE REPLACEMENT THERAPY
  5. LEXAPRO [Concomitant]
     Indication: MOOD SWINGS
     Dates: start: 20090701
  6. AMPYRA [Concomitant]
     Indication: GAIT DISTURBANCE
     Dates: start: 20100601
  7. KLONOPIN [Concomitant]
     Indication: MULTIPLE SCLEROSIS
     Dates: start: 20090701
  8. HYDROCHLOROTHIAZIDE [Concomitant]
     Indication: HYPERTENSION
     Dates: start: 19980101
  9. SYMMETREL [Concomitant]
     Indication: FATIGUE

REACTIONS (4)
  - FATIGUE [None]
  - INFLUENZA LIKE ILLNESS [None]
  - INJECTION SITE REACTION [None]
  - MULTIPLE SCLEROSIS RELAPSE [None]
